FAERS Safety Report 25201066 (Version 2)
Quarter: 2025Q2

REPORT INFORMATION
  Report Type: Report from Study
  Country: US (occurrence: US)
  Receive Date: 20250416
  Receipt Date: 20250416
  Transmission Date: 20250717
  Serious: Yes (Hospitalization, Other)
  Sender: ALEXION PHARMACEUTICALS
  Company Number: US-AstraZeneca-CH-00844965A

PATIENT

DRUGS (1)
  1. CALQUENCE [Suspect]
     Active Substance: ACALABRUTINIB
     Indication: Chronic lymphocytic leukaemia
     Dosage: 100 MILLIGRAM, QD

REACTIONS (6)
  - Pneumonia [Unknown]
  - Joint abscess [Unknown]
  - Contusion [Unknown]
  - Diabetes mellitus [Unknown]
  - Staphylococcal infection [Unknown]
  - Streptococcal infection [Unknown]
